FAERS Safety Report 6338369-3 (Version None)
Quarter: 2009Q3

REPORT INFORMATION
  Report Type: 
  Country: None (occurrence: None)
  Receive Date: 20090902
  Receipt Date: 20090831
  Transmission Date: 20100115
  Serious: Yes (Hospitalization)
  Sender: FDA-Public Use
  Company Number: US-B.I. PHARMACEUTICALS,INC./RIDGEFIELD-2009-BP-10228BP

PATIENT
  Age: 88 Year
  Sex: Female

DRUGS (6)
  1. SPIRIVA [Suspect]
     Dates: start: 20090505
  2. SYNTHROID [Concomitant]
     Dosage: 0.75 MG
     Route: 048
  3. METOPROLOL [Concomitant]
  4. MULTIVITAMIN WITHOUT IRON [Concomitant]
  5. FISH OIL [Concomitant]
     Dosage: 1200 MG
  6. D3 [Concomitant]

REACTIONS (3)
  - DEMENTIA [None]
  - HYPERTENSION [None]
  - PULMONARY EMBOLISM [None]
